FAERS Safety Report 17525739 (Version 1)
Quarter: 2020Q1

REPORT INFORMATION
  Report Type: Spontaneous
  Country: US (occurrence: US)
  Receive Date: 20200311
  Receipt Date: 20200311
  Transmission Date: 20200409
  Serious: Yes (Hospitalization)
  Sender: FDA-Public Use
  Company Number: US-TEVA-2020-US-1196933

PATIENT
  Age: 25 Year
  Sex: Male

DRUGS (5)
  1. CREATINE [Suspect]
     Active Substance: CREATINE
     Indication: EXCESSIVE EXERCISE
     Dosage: OVER-THE-COUNTER SUPPLEMENT
     Route: 065
  2. IBUPROFEN. [Suspect]
     Active Substance: IBUPROFEN
     Indication: MYALGIA
     Dosage: 1600-2400MG IN A DAY AROUND 12 DAYS PER MONTH
     Route: 048
  3. IBUTAMOREN. [Suspect]
     Active Substance: IBUTAMOREN
     Indication: EXCESSIVE EXERCISE
     Dosage: OVER-THE-COUNTER SUPPLEMENT
     Route: 065
  4. CLOMIPHENE [Suspect]
     Active Substance: CLOMIPHENE
     Indication: EXCESSIVE EXERCISE
     Dosage: OVER-THE-COUNTER SUPPLEMENT
     Route: 065
  5. LIGANDROL [Suspect]
     Active Substance: VK-5211
     Indication: EXCESSIVE EXERCISE
     Dosage: OVER-THE-COUNTER SUPPLEMENT
     Route: 065

REACTIONS (1)
  - Liver injury [Recovering/Resolving]
